FAERS Safety Report 15438669 (Version 1)
Quarter: 2018Q3

REPORT INFORMATION
  Report Type: Spontaneous
  Country: US (occurrence: US)
  Receive Date: 20180928
  Receipt Date: 20180928
  Transmission Date: 20181010
  Serious: No
  Sender: FDA-Public Use
  Company Number: US-JNJFOC-20180910824

PATIENT
  Age: 53 Year

DRUGS (2)
  1. SUDAFED 12 HOUR [Suspect]
     Active Substance: PSEUDOEPHEDRINE HYDROCHLORIDE
     Indication: RHINORRHOEA
     Route: 048
  2. SUDAFED 12 HOUR [Suspect]
     Active Substance: PSEUDOEPHEDRINE HYDROCHLORIDE
     Indication: COUGH
     Route: 048

REACTIONS (1)
  - Product use in unapproved indication [Unknown]
